FAERS Safety Report 10042561 (Version 1)
Quarter: 2014Q1

REPORT INFORMATION
  Report Type: Spontaneous
  Country: FR (occurrence: FR)
  Receive Date: 20140327
  Receipt Date: 20140327
  Transmission Date: 20141002
  Serious: Yes (Other)
  Sender: FDA-Public Use
  Company Number: FR-ROXANE LABORATORIES, INC.-2014-RO-00457RO

PATIENT
  Age: 45 Year
  Sex: Female

DRUGS (5)
  1. PREDNISONE [Suspect]
     Indication: STILL^S DISEASE ADULT ONSET
     Dosage: 12.5 MG
     Route: 048
  2. METHOTREXATE [Suspect]
     Indication: STILL^S DISEASE ADULT ONSET
     Route: 065
  3. METHOTREXATE [Suspect]
     Route: 065
  4. METHYLPREDNISOLONE [Suspect]
     Indication: STILL^S DISEASE ADULT ONSET
     Route: 065
  5. IMMUNOGLOBULIN G HUMAN [Suspect]
     Indication: STILL^S DISEASE ADULT ONSET
     Route: 042

REACTIONS (2)
  - Condition aggravated [Recovered/Resolved]
  - Weight increased [Unknown]
